FAERS Safety Report 13461114 (Version 1)
Quarter: 2017Q2

REPORT INFORMATION
  Report Type: Spontaneous
  Country: US (occurrence: US)
  Receive Date: 20170419
  Receipt Date: 20170419
  Transmission Date: 20170830
  Serious: Yes (Life-Threatening, Hospitalization, Disabling)
  Sender: FDA-Public Use
  Company Number: None

PATIENT
  Age: 46 Year
  Sex: Female
  Weight: 94.5 kg

DRUGS (15)
  1. IBUPROFEN. [Concomitant]
     Active Substance: IBUPROFEN
  2. FISH OIL [Concomitant]
     Active Substance: FISH OIL
  3. QSYMIA [Suspect]
     Active Substance: PHENTERMINE HYDROCHLORIDE\TOPIRAMATE
     Indication: OBESITY
     Dosage: ?          QUANTITY:30 CAPSULE(S);?
     Route: 048
     Dates: start: 20150411, end: 20150517
  4. ACETAMINOPHEN. [Concomitant]
     Active Substance: ACETAMINOPHEN
  5. VITAMIN B COMPLEX [Concomitant]
     Active Substance: CYANOCOBALAMIN\DEXPANTHENOL\NIACINAMIDE\PYRIDOXINE HYDROCHLORIDE\RIBOFLAVIN 5^-PHOSPHATE SODIUM\THIAMINE HYDROCHLORIDE\VITAMIN B COMPLEX
  6. XARELTO [Concomitant]
     Active Substance: RIVAROXABAN
  7. WOMEN^S MULTI-VITAMIN  GUMMIES [Concomitant]
  8. VITAMIN B-15 [Concomitant]
  9. NIACIN POWDER [Concomitant]
  10. AZITHROMYCIN ANHYDROUS. [Concomitant]
     Active Substance: AZITHROMYCIN ANHYDROUS
  11. AMLODIPINE [Concomitant]
     Active Substance: AMLODIPINE BESYLATE
  12. COD LIVER OIL [Concomitant]
     Active Substance: COD LIVER OIL
  13. NAPROXIN [Concomitant]
     Active Substance: NAPROXEN
  14. ADEMPAS [Concomitant]
     Active Substance: RIOCIGUAT
  15. MORINGA OLEIFERA LEAF [Concomitant]
     Active Substance: MORINGA OLEIFERA LEAF

REACTIONS (4)
  - Anaemia [None]
  - Pulmonary thrombosis [None]
  - Pulmonary hypertension [None]
  - Right ventricular enlargement [None]

NARRATIVE: CASE EVENT DATE: 20150908
